FAERS Safety Report 8188414-8 (Version None)
Quarter: 2012Q1

REPORT INFORMATION
  Report Type: 
  Country: None (occurrence: None)
  Receive Date: 20120306
  Receipt Date: 20120227
  Transmission Date: 20120608
  Serious: Yes (Other)
  Sender: FDA-Public Use
  Company Number: PHHY2011CN113471

PATIENT
  Age: 58 Year
  Sex: Female

DRUGS (7)
  1. ESTAZOLAM [Concomitant]
     Indication: INSOMNIA
     Dosage: 1 DF, QD
     Dates: start: 20090101
  2. METOPROLOL TARTRATE [Concomitant]
     Indication: CORONARY ARTERY DISEASE
     Dosage: 20.83 MG, (12.5 MG IN THE MORNING AND 2/3 MORNING DOSE IN THE NIGHT)
     Dates: start: 20111101
  3. METOPROLOL TARTRATE [Concomitant]
     Indication: HYPERTENSION
  4. ADALAT [Concomitant]
     Indication: CORONARY ARTERY DISEASE
     Dosage: 30 MG, UNK
     Dates: start: 20090101
  5. VALSARTAN  AND HYDROCHLOROTHIAZIDE [Suspect]
     Dosage: 1 DF, QD (IN MORNING)
     Dates: start: 20111224
  6. ADALAT [Concomitant]
     Indication: HYPERTENSION
  7. ISOSORBIDE MONONITRATE [Concomitant]
     Indication: CORONARY ARTERY DISEASE
     Dosage: 20 MG, DAILY
     Dates: start: 20090101

REACTIONS (7)
  - TINNITUS [None]
  - BLOOD PRESSURE INADEQUATELY CONTROLLED [None]
  - CONDITION AGGRAVATED [None]
  - MUSCULOSKELETAL PAIN [None]
  - HYPOAESTHESIA [None]
  - ANGINA PECTORIS [None]
  - CHEST DISCOMFORT [None]
